FAERS Safety Report 17808245 (Version 1)
Quarter: 2020Q2

REPORT INFORMATION
  Report Type: Other
  Country: IR (occurrence: IR)
  Receive Date: 20200520
  Receipt Date: 20200520
  Transmission Date: 20200714
  Serious: Yes (Hospitalization, Other)
  Sender: FDA-Public Use
  Company Number: IR-INNOGENIX, LLC-2084006

PATIENT
  Age: 11 Year
  Sex: Male

DRUGS (1)
  1. METRONIDAZOLE. [Suspect]
     Active Substance: METRONIDAZOLE
     Indication: DIARRHOEA HAEMORRHAGIC
     Route: 048

REACTIONS (3)
  - Toxicity to various agents [Unknown]
  - Encephalopathy [Recovering/Resolving]
  - Dystonia [Recovering/Resolving]
